FAERS Safety Report 8243776-8 (Version None)
Quarter: 2012Q1

REPORT INFORMATION
  Report Type: 
  Country: None (occurrence: None)
  Receive Date: 20120329
  Receipt Date: 20110923
  Transmission Date: 20120608
  Serious: No
  Sender: FDA-Public Use
  Company Number: US-MYLANLABS-2011S1019996

PATIENT
  Sex: Female

DRUGS (4)
  1. KLONOPIN [Concomitant]
  2. EMSAM [Suspect]
     Indication: DEPRESSION
     Dosage: CHANGED Q24H
     Route: 062
     Dates: start: 20100901, end: 20110921
  3. LITHIUM CARBONATE [Concomitant]
  4. LEVOTHYROXINE SODIUM [Concomitant]

REACTIONS (6)
  - HEADACHE [None]
  - INSOMNIA [None]
  - ANXIETY [None]
  - DISTURBANCE IN ATTENTION [None]
  - FEAR [None]
  - PANIC ATTACK [None]
